FAERS Safety Report 23141361 (Version 1)
Quarter: 2023Q4

REPORT INFORMATION
  Report Type: Spontaneous
  Country: AU (occurrence: AU)
  Receive Date: 20231103
  Receipt Date: 20231103
  Transmission Date: 20240110
  Serious: Yes (Other)
  Sender: FDA-Public Use
  Company Number: AU-BoehringerIngelheim-2023-BI-270068

PATIENT
  Age: 19 Year
  Sex: Male

DRUGS (11)
  1. CLONIDINE HYDROCHLORIDE [Suspect]
     Active Substance: CLONIDINE HYDROCHLORIDE
     Indication: Illusion
  2. CLONIDINE HYDROCHLORIDE [Suspect]
     Active Substance: CLONIDINE HYDROCHLORIDE
     Indication: Major depression
  3. CLONAZEPAM [Suspect]
     Active Substance: CLONAZEPAM
     Indication: Illusion
     Dosage: CLONAZEPAM
  4. CLONAZEPAM [Suspect]
     Active Substance: CLONAZEPAM
     Indication: Major depression
  5. GALCANEZUMAB [Suspect]
     Active Substance: GALCANEZUMAB
     Indication: Illusion
  6. KETAMINE [Suspect]
     Active Substance: KETAMINE
     Indication: Product used for unknown indication
  7. LAMOTRIGINE [Suspect]
     Active Substance: LAMOTRIGINE
     Indication: Illusion
  8. LAMOTRIGINE [Suspect]
     Active Substance: LAMOTRIGINE
     Indication: Major depression
  9. LURASIDONE HYDROCHLORIDE [Suspect]
     Active Substance: LURASIDONE HYDROCHLORIDE
     Indication: Illusion
  10. LURASIDONE HYDROCHLORIDE [Suspect]
     Active Substance: LURASIDONE HYDROCHLORIDE
     Indication: Major depression
  11. NITROUS OXIDE [Suspect]
     Active Substance: NITROUS OXIDE
     Indication: Product used for unknown indication

REACTIONS (5)
  - Drug abuse [Recovering/Resolving]
  - Illusion [Recovering/Resolving]
  - Off label use [Unknown]
  - Treatment failure [Recovering/Resolving]
  - Toxicity to various agents [Unknown]
